FAERS Safety Report 12656009 (Version 1)
Quarter: 2016Q3

REPORT INFORMATION
  Report Type: Spontaneous
  Country: US (occurrence: US)
  Receive Date: 20160816
  Receipt Date: 20160816
  Transmission Date: 20161109
  Serious: No
  Sender: FDA-Public Use
  Company Number: US-ROCHE-1757429

PATIENT
  Age: 61 Year
  Sex: Female

DRUGS (1)
  1. PEGASYS [Suspect]
     Active Substance: PEGINTERFERON ALFA-2A
     Indication: MYELOFIBROSIS
     Route: 058
     Dates: start: 20151030, end: 201605

REACTIONS (1)
  - Autoimmune disorder [Unknown]
